FAERS Safety Report 13651712 (Version 1)
Quarter: 2017Q2

REPORT INFORMATION
  Report Type: Spontaneous
  Country: US (occurrence: US)
  Receive Date: 20170614
  Receipt Date: 20170614
  Transmission Date: 20170830
  Serious: No
  Sender: FDA-Public Use
  Company Number: US-EISAI MEDICAL RESEARCH-EC-2017-028330

PATIENT
  Sex: Female

DRUGS (3)
  1. BELVIQ XR [Suspect]
     Active Substance: LORCASERIN HYDROCHLORIDE
     Dosage: BELVIQ 10 MG
     Route: 048
  2. BELVIQ XR [Suspect]
     Active Substance: LORCASERIN HYDROCHLORIDE
     Indication: WEIGHT DECREASED
     Dosage: BELVIQ 10 MG
     Route: 048
  3. BELVIQ XR [Suspect]
     Active Substance: LORCASERIN HYDROCHLORIDE
     Dosage: BELVIQ XR 20 MG
     Route: 048

REACTIONS (1)
  - Drug ineffective [Recovered/Resolved]
